FAERS Safety Report 4886256-X (Version None)
Quarter: 2006Q1

REPORT INFORMATION
  Report Type: 
  Country: None (occurrence: None)
  Receive Date: 20060118
  Receipt Date: 20060106
  Transmission Date: 20060701
  Serious: Yes (Hospitalization, Other)
  Sender: FDA-Public Use
  Company Number: US200601000952

PATIENT
  Age: 64 Year
  Sex: Female
  Weight: 145.1 kg

DRUGS (2)
  1. FORTEO [Suspect]
     Indication: OSTEOPOROSIS
     Dates: start: 20050901, end: 20051001
  2. FORTEO PEN (FORTEO PEN)) PEN, DISPOSABLE [Concomitant]

REACTIONS (7)
  - ABASIA [None]
  - ASTHENIA [None]
  - FALL [None]
  - HAEMATOMA [None]
  - NEUROFIBROMA [None]
  - SARCOMA [None]
  - WEIGHT DECREASED [None]
